FAERS Safety Report 6193725-1 (Version None)
Quarter: 2009Q2

REPORT INFORMATION
  Report Type: 
  Country: None (occurrence: None)
  Receive Date: 20090518
  Receipt Date: 20090315
  Transmission Date: 20091009
  Serious: No
  Sender: FDA-Public Use
  Company Number: US-BAYER-200910877BCC

PATIENT
  Sex: Female

DRUGS (1)
  1. MIDOL [Suspect]
     Indication: MUSCLE SPASMS
     Dosage: UNIT DOSE: 220 MG
     Route: 048

REACTIONS (1)
  - MUSCLE SPASMS [None]
